FAERS Safety Report 7288326-8 (Version None)
Quarter: 2011Q1

REPORT INFORMATION
  Report Type: 
  Country: None (occurrence: None)
  Receive Date: 20110211
  Receipt Date: 20110208
  Transmission Date: 20110831
  Serious: Yes (Life-Threatening)
  Sender: FDA-Public Use
  Company Number: GB-PFIZER INC-2011028679

PATIENT
  Age: 74 Year
  Sex: Male
  Weight: 85 kg

DRUGS (11)
  1. METRONIDAZOLE [Suspect]
     Dosage: 500 MG, UNK
     Route: 042
     Dates: start: 20110125, end: 20110125
  2. NICORANDIL [Concomitant]
  3. SERTRALINE HYDROCHLORIDE [Suspect]
     Indication: DEPRESSION
     Dosage: UNK
     Route: 048
     Dates: start: 20101201, end: 20110125
  4. BISOPROLOL FUMARATE [Concomitant]
  5. FELODIPINE [Concomitant]
  6. MEROPENEM TRIHYDRATE [Suspect]
     Dosage: 500 MG, UNK
     Route: 042
     Dates: start: 20110125, end: 20110125
  7. CLARITHROMYCIN [Concomitant]
  8. CANDESARTAN CILEXETIL [Concomitant]
  9. ISOSORBIDE MONONITRATE [Concomitant]
  10. ACETYLSALICYLIC ACID [Concomitant]
  11. ATORVASTATIN [Concomitant]

REACTIONS (7)
  - MULTI-ORGAN FAILURE [None]
  - ACUTE HEPATIC FAILURE [None]
  - HEPATOMEGALY [None]
  - PAIN [None]
  - JAUNDICE [None]
  - LIVER FUNCTION TEST ABNORMAL [None]
  - INTERNATIONAL NORMALISED RATIO INCREASED [None]
